FAERS Safety Report 4821186-0 (Version None)
Quarter: 2005Q4

REPORT INFORMATION
  Report Type: 
  Country: None (occurrence: None)
  Receive Date: 20051103
  Receipt Date: 20051022
  Transmission Date: 20060501
  Serious: Yes (Hospitalization, Other)
  Sender: FDA-Public Use
  Company Number: 2005145716

PATIENT
  Age: 63 Year
  Sex: Female
  Weight: 69.4003 kg

DRUGS (7)
  1. CELEBREX [Suspect]
     Indication: OSTEOARTHRITIS
     Dosage: 400 MG (200 MG, 2 IN 1 D), ORAL
     Route: 048
     Dates: start: 20040101
  2. CALCIUM (CALCIUM) [Concomitant]
  3. GLUCOSAMINE (GLUCOSAMINE) [Concomitant]
  4. VITAMINS (VITAMINS) [Concomitant]
  5. LEVOTHYROXINE SODIUM [Concomitant]
  6. PREMARIN [Concomitant]
  7. ALLEGRA [Concomitant]

REACTIONS (1)
  - BLISTER [None]
